FAERS Safety Report 16159238 (Version 7)
Quarter: 2019Q2

REPORT INFORMATION
  Report Type: Report from Study
  Country: TR (occurrence: TR)
  Receive Date: 20190404
  Receipt Date: 20190520
  Transmission Date: 20190711
  Serious: Yes (Hospitalization)
  Sender: FDA-Public Use
  Company Number: TR-PFIZER INC-2019127561

PATIENT
  Age: 70 Year
  Sex: Male
  Weight: 87 kg

DRUGS (12)
  1. EXCIPIAL U LIPOLOT [Concomitant]
     Active Substance: UREA
     Indication: RASH
  2. AVELUMAB [Suspect]
     Active Substance: AVELUMAB
     Dosage: 900 MG, CYCLIC (ONCE EVERY TWO WEEKS)
     Route: 042
  3. EXCIPIAL U LIPOLOT [Concomitant]
     Active Substance: UREA
     Indication: ERYTHEMA
     Dosage: 200 ML, 1 PER 0.3 DAYS
     Route: 061
     Dates: start: 20180207
  4. CARBOPLATIN. [Suspect]
     Active Substance: CARBOPLATIN
     Indication: NON-SMALL CELL LUNG CANCER
     Dosage: 240 MG, UNK
     Route: 042
     Dates: start: 20190225
  5. AVELUMAB [Suspect]
     Active Substance: AVELUMAB
     Dosage: 900 MG, CYCLIC (ONCE EVERY TWO WEEKS)
     Route: 042
  6. EXCIPIAL U LIPOLOT [Concomitant]
     Active Substance: UREA
     Indication: CUTIS LAXA
  7. AVELUMAB [Suspect]
     Active Substance: AVELUMAB
     Dosage: 900 MG, CYCLIC (ONCE EVERY TWO WEEKS)
     Route: 042
  8. AVELUMAB [Suspect]
     Active Substance: AVELUMAB
     Dosage: 900 MG, CYCLIC (ONCE EVERY TWO WEEKS)
     Route: 042
  9. ADVANTAN [Concomitant]
     Active Substance: METHYLPREDNISOLONE ACEPONATE
     Indication: ERYTHEMA
     Dosage: 20 MG, 1X/DAY
     Route: 061
     Dates: start: 20180207
  10. ADVANTAN [Concomitant]
     Active Substance: METHYLPREDNISOLONE ACEPONATE
     Indication: RASH
  11. AVELUMAB [Suspect]
     Active Substance: AVELUMAB
     Indication: NON-SMALL CELL LUNG CANCER
     Dosage: 900 MG, CYCLIC (ONCE EVERY TWO WEEKS)
     Route: 042
     Dates: start: 20170125
  12. PEMETREXED. [Suspect]
     Active Substance: PEMETREXED
     Indication: NON-SMALL CELL LUNG CANCER
     Dosage: 500 MG, UNK
     Route: 042
     Dates: start: 20190225

REACTIONS (4)
  - Pancytopenia [Recovered/Resolved with Sequelae]
  - Febrile neutropenia [Recovered/Resolved]
  - Stomatitis [Recovered/Resolved]
  - Rash [Recovered/Resolved]

NARRATIVE: CASE EVENT DATE: 20190306
